FAERS Safety Report 15092659 (Version 2)
Quarter: 2018Q3

REPORT INFORMATION
  Report Type: Spontaneous
  Country: DE (occurrence: DE)
  Receive Date: 20180629
  Receipt Date: 20180705
  Transmission Date: 20181010
  Serious: Yes (Death, Life-Threatening, Hospitalization)
  Sender: FDA-Public Use
  Company Number: DE-JNJFOC-20180630701

PATIENT
  Age: 63 Year
  Sex: Female

DRUGS (10)
  1. RISPERIDONE. [Suspect]
     Active Substance: RISPERIDONE
     Indication: DELIRIUM TREMENS
     Route: 048
     Dates: start: 20180414, end: 20180416
  2. DIAZEPAM. [Suspect]
     Active Substance: DIAZEPAM
     Indication: DELIRIUM TREMENS
     Route: 048
     Dates: start: 20180413, end: 20180416
  3. POTASSIUM CHLORIDE. [Concomitant]
     Active Substance: POTASSIUM CHLORIDE
     Indication: BLOOD POTASSIUM DECREASED
     Route: 048
     Dates: start: 20180413
  4. STEROFUNDIN [Concomitant]
     Active Substance: CALCIUM CHLORIDE\MAGNESIUM CHLORIDE\POTASSIUM CHLORIDE\SODIUM ACETATE\SODIUM CHLORIDE
     Route: 048
     Dates: start: 20180414, end: 20180416
  5. DIAZEPAM. [Suspect]
     Active Substance: DIAZEPAM
     Indication: DELIRIUM TREMENS
     Route: 048
     Dates: start: 20180413, end: 20180413
  6. CLEXANE [Concomitant]
     Active Substance: ENOXAPARIN SODIUM
     Indication: THROMBOSIS PROPHYLAXIS
     Dosage: DOSE: 0.4 IE
     Route: 058
     Dates: start: 20180413, end: 20180416
  7. VITAMINA B1 [Concomitant]
     Indication: PROPHYLAXIS
     Route: 048
     Dates: start: 20180416
  8. NOVALGIN (METAMIZOLE SODIUM) [Concomitant]
     Active Substance: METAMIZOLE SODIUM
     Route: 048
     Dates: start: 20180415, end: 20180416
  9. HALOPERIDOL. [Concomitant]
     Active Substance: HALOPERIDOL
     Route: 065
  10. NOVALGIN (METAMIZOLE SODIUM) [Concomitant]
     Active Substance: METAMIZOLE SODIUM
     Route: 048
     Dates: start: 20180413, end: 20180414

REACTIONS (5)
  - Disorientation [Not Recovered/Not Resolved]
  - Product use in unapproved indication [Unknown]
  - Cardiomyopathy alcoholic [Fatal]
  - Off label use [Unknown]
  - Heart rate irregular [Not Recovered/Not Resolved]

NARRATIVE: CASE EVENT DATE: 201804
